FAERS Safety Report 8239180-9 (Version None)
Quarter: 2012Q1

REPORT INFORMATION
  Report Type: 
  Country: None (occurrence: None)
  Receive Date: 20120328
  Receipt Date: 20120320
  Transmission Date: 20120608
  Serious: No
  Sender: FDA-Public Use
  Company Number: US-BIOGENIDEC-2011BI023128

PATIENT
  Sex: Female

DRUGS (1)
  1. TYSABRI [Suspect]
     Indication: MULTIPLE SCLEROSIS
     Route: 042
     Dates: start: 20100707

REACTIONS (13)
  - COORDINATION ABNORMAL [None]
  - MUSCULAR WEAKNESS [None]
  - GAIT DISTURBANCE [None]
  - NERVOUSNESS [None]
  - SINUSITIS [None]
  - ANXIETY [None]
  - COUGH [None]
  - MOBILITY DECREASED [None]
  - BACK PAIN [None]
  - PERONEAL NERVE PALSY [None]
  - DIZZINESS [None]
  - SCOLIOSIS [None]
  - PANIC ATTACK [None]
